FAERS Safety Report 4355872-6 (Version None)
Quarter: 2004Q2

REPORT INFORMATION
  Report Type: 
  Country: None (occurrence: None)
  Receive Date: 20040505
  Receipt Date: 20040427
  Transmission Date: 20050107
  Serious: Yes (Other)
  Sender: FDA-Public Use
  Company Number: HQWYE637128APR04

PATIENT
  Age: 27 Year
  Sex: Male

DRUGS (3)
  1. SIROLIMUS (SIROLIMUS, UNSPEC) [Suspect]
     Indication: PROPHYLAXIS AGAINST TRANSPLANT REJECTION
  2. TACROLIMUS (TACROLIMUS) [Concomitant]
  3. PREDNISOLONE [Concomitant]

REACTIONS (2)
  - COOMBS TEST POSITIVE [None]
  - HAEMOLYTIC ANAEMIA [None]
